FAERS Safety Report 17204369 (Version 3)
Quarter: 2020Q2

REPORT INFORMATION
  Report Type: Report from Study
  Country: US (occurrence: US)
  Receive Date: 20191226
  Receipt Date: 20200511
  Transmission Date: 20200713
  Serious: Yes (Hospitalization, Other)
  Sender: FDA-Public Use
  Company Number: US-ACTELION-A-NJ2019-199867

PATIENT
  Sex: Female
  Weight: 59.86 kg

DRUGS (1)
  1. OPSUMIT [Suspect]
     Active Substance: MACITENTAN
     Indication: PULMONARY ARTERIAL HYPERTENSION
     Dosage: 10 MG, QD
     Route: 048
     Dates: start: 20180721

REACTIONS (5)
  - Influenza [Unknown]
  - Pyrexia [Unknown]
  - Dialysis related complication [Unknown]
  - Pneumonia [Unknown]
  - Nausea [Unknown]
